FAERS Safety Report 15389826 (Version 2)
Quarter: 2018Q4

REPORT INFORMATION
  Report Type: Report from Study
  Country: US (occurrence: US)
  Receive Date: 20180917
  Receipt Date: 20181001
  Transmission Date: 20190204
  Serious: Yes (Other)
  Sender: FDA-Public Use
  Company Number: US-GILEAD-2018-0363154

PATIENT
  Age: 66 Year
  Sex: Female

DRUGS (1)
  1. AMBRISENTAN [Suspect]
     Active Substance: AMBRISENTAN
     Indication: PRODUCT USED FOR UNKNOWN INDICATION
     Dosage: 5 MG, QD
     Route: 065
     Dates: start: 20140527

REACTIONS (11)
  - Spinal operation [Unknown]
  - Migraine [Unknown]
  - Fall [Unknown]
  - Dysstasia [Unknown]
  - Cellulitis [Recovering/Resolving]
  - Loss of consciousness [Unknown]
  - Oedema [Unknown]
  - Headache [Not Recovered/Not Resolved]
  - Cerebral haemorrhage [Unknown]
  - Dizziness postural [Unknown]
  - Swelling [Recovering/Resolving]

NARRATIVE: CASE EVENT DATE: 2017
